FAERS Safety Report 24072355 (Version 1)
Quarter: 2024Q3

REPORT INFORMATION
  Report Type: Spontaneous
  Country: CN (occurrence: CN)
  Receive Date: 20240710
  Receipt Date: 20240710
  Transmission Date: 20241016
  Serious: Yes (Other)
  Sender: JOHNSON AND JOHNSON
  Company Number: CN-JNJFOC-20240704091

PATIENT
  Age: 16 Year
  Sex: Male
  Weight: 70 kg

DRUGS (2)
  1. INVEGA [Suspect]
     Active Substance: PALIPERIDONE
     Indication: Psychiatric symptom
     Route: 048
     Dates: start: 20240619, end: 20240628
  2. OLANZAPINE [Suspect]
     Active Substance: OLANZAPINE
     Indication: Psychiatric symptom
     Dosage: FORM: ORAL MUCOADHESIVE PATCHES
     Route: 048
     Dates: start: 20240611, end: 20240628

REACTIONS (2)
  - Liver function test abnormal [Unknown]
  - Blood uric acid increased [Unknown]

NARRATIVE: CASE EVENT DATE: 20240627
